FAERS Safety Report 7338292-1 (Version None)
Quarter: 2011Q1

REPORT INFORMATION
  Report Type: 
  Country: None (occurrence: None)
  Receive Date: 20110308
  Receipt Date: 20110301
  Transmission Date: 20110831
  Serious: Yes (Other)
  Sender: FDA-Public Use
  Company Number: A0916109A

PATIENT
  Age: 82 Year
  Sex: Female

DRUGS (1)
  1. ARZERRA [Suspect]
     Dosage: 2000MG MONTHLY
     Route: 042

REACTIONS (4)
  - MALAISE [None]
  - DYSPNOEA [None]
  - FATIGUE [None]
  - CHRONIC LYMPHOCYTIC LEUKAEMIA TRANSFORMATION [None]
